FAERS Safety Report 9240712 (Version 1)
Quarter: 2013Q2

REPORT INFORMATION
  Report Type: Spontaneous
  Country: US (occurrence: US)
  Receive Date: 20130418
  Receipt Date: 20130418
  Transmission Date: 20140414
  Serious: Yes (Death)
  Sender: FDA-Public Use
  Company Number: US-AMGEN-USASP2013026863

PATIENT
  Age: 64 Year
  Sex: Male

DRUGS (8)
  1. VECTIBIX [Suspect]
     Indication: PRODUCT USED FOR UNKNOWN INDICATION
     Dosage: 480 MUG, UNK
     Dates: start: 20120504
  2. XELODA [Concomitant]
     Dosage: UNK
  3. LOPRESSOR [Concomitant]
     Dosage: UNK
  4. MORPHINE [Concomitant]
     Dosage: UNK
  5. PRILOSEC                           /00661201/ [Concomitant]
     Dosage: UNK
  6. COMPAZINE                          /00013302/ [Concomitant]
     Dosage: UNK
  7. XANAX [Concomitant]
     Dosage: UNK
  8. VITAMINS NOS [Concomitant]
     Dosage: UNK

REACTIONS (1)
  - Colon cancer metastatic [Fatal]
